FAERS Safety Report 8424027-8 (Version None)
Quarter: 2012Q2

REPORT INFORMATION
  Report Type: 
  Country: None (occurrence: None)
  Receive Date: 20120608
  Receipt Date: 20110426
  Transmission Date: 20120825
  Serious: No
  Sender: FDA-Public Use
  Company Number: US-ASTRAZENECA-2011SE23986

PATIENT
  Sex: Female

DRUGS (3)
  1. STEROIDS [Concomitant]
  2. PULMICORT [Suspect]
     Indication: CHRONIC OBSTRUCTIVE PULMONARY DISEASE
     Route: 055
  3. ALBUTEROL [Concomitant]

REACTIONS (2)
  - DRUG DOSE OMISSION [None]
  - IMMUNE SYSTEM DISORDER [None]
